FAERS Safety Report 7792174-X (Version None)
Quarter: 2011Q4

REPORT INFORMATION
  Report Type: 
  Country: None (occurrence: None)
  Receive Date: 20111003
  Receipt Date: 20111003
  Transmission Date: 20120403
  Serious: Yes (Other)
  Sender: FDA-Public Use
  Company Number: None

PATIENT
  Sex: Male
  Weight: 21.6 kg

DRUGS (1)
  1. LAMICTAL [Suspect]

REACTIONS (2)
  - OFF LABEL USE [None]
  - WRONG TECHNIQUE IN DRUG USAGE PROCESS [None]
